FAERS Safety Report 12452717 (Version 1)
Quarter: 2016Q2

REPORT INFORMATION
  Report Type: Spontaneous
  Country: KW (occurrence: KW)
  Receive Date: 20160609
  Receipt Date: 20160609
  Transmission Date: 20160815
  Serious: Yes (Hospitalization, Other)
  Sender: FDA-Public Use
  Company Number: KW-SCIEGEN PHARMACEUTICALS INC-2016SCILIT00158

PATIENT
  Age: 26 Year
  Sex: Female

DRUGS (3)
  1. ATOMOXETINE [Suspect]
     Active Substance: ATOMOXETINE
     Dosage: 65 MG/D 2 WEEKS LATER GIVEN IN 2 DIVIDED DOSES OF 40 AND 25 MG.
  2. ATOMOXETINE [Suspect]
     Active Substance: ATOMOXETINE
     Indication: ATTENTION DEFICIT/HYPERACTIVITY DISORDER
     Dosage: 40 MG, QD
     Route: 065
  3. FLUOXETINE CAPSULES, USP [Suspect]
     Active Substance: FLUOXETINE HYDROCHLORIDE
     Indication: BORDERLINE PERSONALITY DISORDER
     Dosage: 40 MG, QD
     Route: 065

REACTIONS (10)
  - Dyspnoea [Unknown]
  - Anger [Unknown]
  - Chest pain [Unknown]
  - Disturbance in attention [Unknown]
  - Akinesia [Unknown]
  - Stress cardiomyopathy [Unknown]
  - Marital problem [Unknown]
  - Acute myocardial infarction [Unknown]
  - Hyperkinesia [Unknown]
  - Impulsive behaviour [Unknown]
